FAERS Safety Report 8383139 (Version 2)
Quarter: 2012Q4

REPORT INFORMATION
  Report Type: 
  Country: FR (occurrence: FR)
  Receive Date: 20120130
  Receipt Date: 20121223
  Transmission Date: 20130627
  Serious: Yes (Death, Life-Threatening, Other)
  Sender: FDA-Public Use
  Company Number: PHHY2012FR007037

PATIENT
  Age: 58 Year
  Sex: Male

DRUGS (7)
  1. SIMULECT [Suspect]
     Indication: LIVER TRANSPLANT
     Dosage: 20 mg, QD
     Dates: start: 20120125, end: 20120126
  2. CORTICOSTEROIDS [Concomitant]
     Indication: LIVER TRANSPLANT
  3. ZOVIRAX [Concomitant]
     Indication: LIVER TRANSPLANT
  4. CELLCEPT [Concomitant]
     Indication: IMMUNOSUPPRESSION
     Dosage: 1.5 g, BID
     Dates: start: 20120125
  5. HYPNOVEL [Concomitant]
     Indication: LIVER TRANSPLANT
  6. TIENAM [Concomitant]
     Indication: LIVER TRANSPLANT
     Dosage: UNK UKN, UNK
  7. SOLUMEDROL [Concomitant]
     Indication: IMMUNOSUPPRESSION
     Dosage: 450 mg, QD
     Route: 042
     Dates: start: 20120125

REACTIONS (3)
  - Sepsis [Fatal]
  - Intravascular haemolysis [Recovered/Resolved]
  - Haemoglobin decreased [Unknown]
